FAERS Safety Report 5689821-5 (Version None)
Quarter: 2008Q1

REPORT INFORMATION
  Report Type: 
  Country: None (occurrence: None)
  Receive Date: 20080331
  Receipt Date: 20080331
  Transmission Date: 20080703
  Serious: Yes (Other)
  Sender: FDA-Public Use
  Company Number: None

PATIENT
  Age: 59 Year
  Sex: Female
  Weight: 77.1115 kg

DRUGS (2)
  1. SINGULAIR [Suspect]
     Indication: ALLERGENIC DESENSITISATION PROCEDURE
     Dosage: 1 PILL ONCE DAILLY EVENI
     Dates: start: 20070316, end: 20070430
  2. SINGULAIR [Suspect]
     Indication: ALLERGY TO ARTHROPOD STING
     Dosage: 1 PILL ONCE DAILLY EVENI
     Dates: start: 20070316, end: 20070430

REACTIONS (9)
  - ABNORMAL BEHAVIOUR [None]
  - ANXIETY [None]
  - DEPRESSION [None]
  - DISSOCIATION [None]
  - FEAR [None]
  - FEELING ABNORMAL [None]
  - MANIA [None]
  - STRESS [None]
  - SUICIDAL IDEATION [None]
